FAERS Safety Report 20213785 (Version 4)
Quarter: 2022Q1

REPORT INFORMATION
  Report Type: Report from Study
  Country: US (occurrence: US)
  Receive Date: 20211221
  Receipt Date: 20220120
  Transmission Date: 20220423
  Serious: Yes (Other)
  Sender: FDA-Public Use
  Company Number: US-CELGENE-USA-20211202789

PATIENT
  Age: 66 Year
  Sex: Male
  Weight: 100.70 kg

DRUGS (22)
  1. LISOCABTAGENE MARALEUCEL [Suspect]
     Active Substance: LISOCABTAGENE MARALEUCEL
     Indication: Chronic lymphocytic leukaemia
     Dosage: 5 X10^7 CD8+ T CELLS; 5 X10^7 CD4+ T CELLS
     Route: 041
     Dates: start: 20211203, end: 20211203
  2. KETOCONAZOLE [Concomitant]
     Active Substance: KETOCONAZOLE
     Indication: Product used for unknown indication
     Route: 061
  3. KETOCONAZOLE [Concomitant]
     Active Substance: KETOCONAZOLE
     Route: 061
  4. LISINOPRIL [Concomitant]
     Active Substance: LISINOPRIL
     Indication: Product used for unknown indication
     Dosage: 5 MILLIGRAM
     Route: 048
     Dates: end: 20211206
  5. SIMVASTATIN [Concomitant]
     Active Substance: SIMVASTATIN
     Indication: Product used for unknown indication
     Dosage: 20 MILLIGRAM
     Route: 048
  6. ACETAMINOPHEN [Concomitant]
     Active Substance: ACETAMINOPHEN
     Indication: Pain
     Route: 048
  7. ACETAMINOPHEN [Concomitant]
     Active Substance: ACETAMINOPHEN
     Indication: Pyrexia
     Dosage: 2600 MILLIGRAM
     Route: 048
     Dates: start: 20211208, end: 20211210
  8. ACETAMINOPHEN [Concomitant]
     Active Substance: ACETAMINOPHEN
     Route: 048
     Dates: start: 20211205
  9. ACETAMINOPHEN [Concomitant]
     Active Substance: ACETAMINOPHEN
     Route: 041
     Dates: start: 20211207
  10. ALLOPURINOL [Concomitant]
     Active Substance: ALLOPURINOL
     Indication: Prophylaxis
     Dosage: 300 MILLIGRAM
     Route: 048
     Dates: start: 20211128
  11. ACYCLOVIR [Concomitant]
     Active Substance: ACYCLOVIR
     Indication: Antiviral prophylaxis
     Dosage: 800 MILLIGRAM
     Route: 048
     Dates: start: 20211128
  12. RAMELTEON [Concomitant]
     Active Substance: RAMELTEON
     Indication: Insomnia
     Dosage: 8 MILLIGRAM
     Route: 048
     Dates: start: 20211129, end: 20211210
  13. GUAIFENESIN [Concomitant]
     Active Substance: GUAIFENESIN
     Indication: Cough
     Dosage: 5-10 ML
     Route: 048
     Dates: start: 20211130
  14. GUAIFENESIN [Concomitant]
     Active Substance: GUAIFENESIN
     Dosage: 5-10 ML
     Route: 048
     Dates: start: 20211209
  15. GUAIFENESIN [Concomitant]
     Active Substance: GUAIFENESIN
     Dosage: 60 MILLILITER
     Route: 048
     Dates: start: 20211214
  16. GUAIFENESIN [Concomitant]
     Active Substance: GUAIFENESIN
     Dosage: 40 MILLILITER
     Route: 048
     Dates: start: 20211217
  17. LORAZEPAM [Concomitant]
     Active Substance: LORAZEPAM
     Indication: Anxiety
     Dosage: 0.5-1MG
     Route: 048
     Dates: start: 20211201
  18. LORAZEPAM [Concomitant]
     Active Substance: LORAZEPAM
     Indication: Nausea
  19. LORAZEPAM [Concomitant]
     Active Substance: LORAZEPAM
     Indication: Vomiting
  20. ESCITALOPRAM OXALATE [Concomitant]
     Active Substance: ESCITALOPRAM OXALATE
     Indication: Product used for unknown indication
     Dosage: 20 MILLIGRAM
     Route: 048
     Dates: start: 20211128
  21. IBUPROFEN [Concomitant]
     Active Substance: IBUPROFEN
     Indication: Pain
     Route: 065
  22. VITAMIN D3 [Concomitant]
     Active Substance: CHOLECALCIFEROL
     Indication: Product used for unknown indication
     Dosage: 25 MICROGRAM
     Route: 048
     Dates: start: 20211128

REACTIONS (7)
  - Neurotoxicity [Not Recovered/Not Resolved]
  - Haemophagocytic lymphohistiocytosis [Not Recovered/Not Resolved]
  - Anaemia [Not Recovered/Not Resolved]
  - Cytokine release syndrome [Not Recovered/Not Resolved]
  - Pneumonia [Not Recovered/Not Resolved]
  - Thrombocytopenia [Not Recovered/Not Resolved]
  - Neutropenia [Not Recovered/Not Resolved]

NARRATIVE: CASE EVENT DATE: 20211205
